FAERS Safety Report 7124182-6 (Version None)
Quarter: 2010Q4

REPORT INFORMATION
  Report Type: 
  Country: None (occurrence: None)
  Receive Date: 20101126
  Receipt Date: 20101118
  Transmission Date: 20110411
  Serious: Yes (Hospitalization)
  Sender: FDA-Public Use
  Company Number: US-AMGEN-USASP2010005762

PATIENT

DRUGS (1)
  1. ENBREL [Suspect]
     Indication: RHEUMATOID ARTHRITIS
     Dates: start: 20030201, end: 20101001

REACTIONS (9)
  - ABDOMINAL PAIN LOWER [None]
  - ASTHENIA [None]
  - FAECES DISCOLOURED [None]
  - FATIGUE [None]
  - INTESTINAL FISTULA [None]
  - KLEBSIELLA INFECTION [None]
  - LARGE INTESTINE PERFORATION [None]
  - RHEUMATOID ARTHRITIS [None]
  - VAGINAL DISCHARGE [None]
